FAERS Safety Report 8256836-2 (Version None)
Quarter: 2012Q1

REPORT INFORMATION
  Report Type: 
  Country: None (occurrence: None)
  Receive Date: 20120327
  Receipt Date: 20120216
  Transmission Date: 20120608
  Serious: Yes (Hospitalization)
  Sender: FDA-Public Use
  Company Number: UTC-015604

PATIENT
  Age: 38 Year
  Sex: Female
  Weight: 177.2 kg

DRUGS (3)
  1. TRACLEER [Concomitant]
  2. TYVASO [Suspect]
     Indication: PULMONARY ARTERIAL HYPERTENSION
     Dosage: 216 MCG (54 MCG, 4 IN 1 D) , INHALATION
     Route: 055
     Dates: start: 20100310
  3. REVATIO [Concomitant]

REACTIONS (1)
  - FLUID OVERLOAD [None]
